FAERS Safety Report 22750363 (Version 2)
Quarter: 2023Q4

REPORT INFORMATION
  Report Type: Spontaneous
  Country: CA (occurrence: CA)
  Receive Date: 20230726
  Receipt Date: 20231128
  Transmission Date: 20240109
  Serious: Yes (Other)
  Sender: FDA-Public Use
  Company Number: CA-ORGANON-O2307CAN002695

PATIENT
  Sex: Female

DRUGS (1)
  1. NEXPLANON [Suspect]
     Active Substance: ETONOGESTREL
     Indication: Product used for unknown indication
     Dosage: 1 IMPLANT
     Route: 059
     Dates: start: 2018

REACTIONS (3)
  - Pregnancy with implant contraceptive [Unknown]
  - Unintended pregnancy [Unknown]
  - Incorrect product administration duration [Unknown]

NARRATIVE: CASE EVENT DATE: 20210101
